FAERS Safety Report 11595209 (Version 2)
Quarter: 2018Q4

REPORT INFORMATION
  Report Type: Report from Study
  Country: GB (occurrence: GB)
  Receive Date: 20151006
  Receipt Date: 20181129
  Transmission Date: 20190204
  Serious: Yes (Other)
  Sender: FDA-Public Use
  Company Number: GB-ROCHE-1639827

PATIENT

DRUGS (5)
  1. AZD8931 [Suspect]
     Active Substance: SAPITINIB
     Route: 065
  2. AZD8931 [Suspect]
     Active Substance: SAPITINIB
     Route: 065
  3. AZD8931 [Suspect]
     Active Substance: SAPITINIB
     Indication: GASTROOESOPHAGEAL CANCER
     Route: 065
  4. OXALIPLATIN. [Suspect]
     Active Substance: OXALIPLATIN
     Indication: GASTROOESOPHAGEAL CANCER
     Route: 065
  5. CAPECITABINE. [Suspect]
     Active Substance: CAPECITABINE
     Indication: GASTROOESOPHAGEAL CANCER
     Dosage: DAY 1-21, FOR A MAXIMUM OF 8 CYCLES
     Route: 065

REACTIONS (7)
  - Hypophosphataemia [Unknown]
  - Vomiting [Unknown]
  - Infection [Unknown]
  - Rash [Unknown]
  - Diarrhoea [Unknown]
  - Wound dehiscence [Unknown]
  - Gastrointestinal disorder [Unknown]
